FAERS Safety Report 16909776 (Version 1)
Quarter: 2019Q4

REPORT INFORMATION
  Report Type: Spontaneous
  Country: DE (occurrence: DE)
  Receive Date: 20191011
  Receipt Date: 20191011
  Transmission Date: 20200122
  Serious: Yes (Hospitalization, Other)
  Sender: FDA-Public Use
  Company Number: DE-ASTRAZENECA-2019SF43684

PATIENT
  Age: 72 Year
  Sex: Male

DRUGS (8)
  1. OXYGEN. [Concomitant]
     Active Substance: OXYGEN
     Dosage: 4L/MIN
  2. PREDNISOLONE. [Concomitant]
     Active Substance: PREDNISOLONE
     Dosage: 100.0MG UNKNOWN
     Route: 042
  3. TIOTROPIUM RESPIMAT [Concomitant]
     Active Substance: TIOTROPIUM
  4. SYMBICORT [Suspect]
     Active Substance: BUDESONIDE\FORMOTEROL FUMARATE DIHYDRATE
     Indication: ASTHMA
     Dosage: 320 / 9 UG TWO TIMES A DAY
     Route: 055
     Dates: start: 20071201
  5. FENOTEROL [Concomitant]
     Active Substance: FENOTEROL
     Dosage: 100 DA (AS REQUIRED)
  6. THEOPHYLLINE [Concomitant]
     Active Substance: THEOPHYLLINE ANHYDROUS
     Dosage: 300(2X1)
  7. ROFLUMILAST. [Concomitant]
     Active Substance: ROFLUMILAST
  8. SYMBICORT [Suspect]
     Active Substance: BUDESONIDE\FORMOTEROL FUMARATE DIHYDRATE
     Indication: CHRONIC OBSTRUCTIVE PULMONARY DISEASE
     Dosage: 320 / 9 UG TWO TIMES A DAY
     Route: 055
     Dates: start: 20071201

REACTIONS (5)
  - Respiratory failure [Unknown]
  - Bronchitis [Unknown]
  - Condition aggravated [Unknown]
  - General physical health deterioration [Unknown]
  - Respiratory tract infection [Unknown]
